FAERS Safety Report 5143643-2 (Version None)
Quarter: 2006Q4

REPORT INFORMATION
  Report Type: 
  Country: None (occurrence: None)
  Receive Date: 20061103
  Receipt Date: 20060824
  Transmission Date: 20070319
  Serious: Yes (Hospitalization)
  Sender: FDA-Public Use
  Company Number: US-ELI_LILLY_AND_COMPANY-US200609004069

PATIENT
  Age: 51 Year
  Sex: Male
  Weight: 117.91 kg

DRUGS (1)
  1. ZYPREXA [Suspect]
     Route: 065

REACTIONS (2)
  - DIABETES MELLITUS [None]
  - MYOCARDIAL INFARCTION [None]
